FAERS Safety Report 9453172 (Version 2)
Quarter: 2013Q3

REPORT INFORMATION
  Report Type: Report from Study
  Country: JP (occurrence: JP)
  Receive Date: 20130812
  Receipt Date: 20130812
  Transmission Date: 20140515
  Serious: Yes (Death)
  Sender: FDA-Public Use
  Company Number: JP-CUBIST PHARMACEUTICAL, INC.-2013CBST000038

PATIENT
  Age: 81 Year
  Sex: Male
  Weight: 50 kg

DRUGS (9)
  1. CUBICIN [Suspect]
     Indication: SEPSIS
     Dosage: 6 MG/KG, QD
     Route: 041
     Dates: start: 20121213, end: 20121214
  2. CUBICIN [Suspect]
     Indication: OFF LABEL USE
     Dosage: 6 MG/KG, QOD
     Route: 041
     Dates: start: 20121215, end: 20121217
  3. MEROPENEM                          /01250502/ [Concomitant]
     Indication: SEPSIS
     Dosage: 2 G, QD
     Route: 041
     Dates: start: 20121213, end: 20121218
  4. BFLUID [Concomitant]
     Indication: NUTRITIONAL SUPPLEMENTATION
     Dosage: 1000 ML, QD
     Route: 041
     Dates: start: 20121213, end: 20121219
  5. SOLACET D [Concomitant]
     Indication: FLUID REPLACEMENT
     Dosage: 500 ML, QD
     Dates: start: 20121213, end: 20121218
  6. VITAMEDIN                          /00176001/ [Concomitant]
     Indication: VITAMIN SUPPLEMENTATION
     Dosage: 1 DF, QD
     Route: 041
     Dates: start: 20121213, end: 20121219
  7. SODIUM CHLORIDE [Concomitant]
     Indication: ELECTROLYTE SUBSTITUTION THERAPY
     Dosage: 60 ML, QD
     Route: 041
     Dates: start: 20121213, end: 20121219
  8. LASIX                              /00032601/ [Concomitant]
     Indication: OEDEMA DUE TO RENAL DISEASE
     Dosage: 20 MG, QD
     Dates: start: 20121213, end: 20121218
  9. NOR-ADRENALIN                      /00127502/ [Concomitant]
     Indication: SEPSIS
     Dosage: 9 MG, QD
     Route: 051
     Dates: start: 20121213, end: 20121219

REACTIONS (2)
  - Septic shock [Fatal]
  - Drug ineffective [None]
